FAERS Safety Report 9112463 (Version 1)
Quarter: 2013Q1

REPORT INFORMATION
  Report Type: Spontaneous
  Country: US (occurrence: US)
  Receive Date: 20130211
  Receipt Date: 20130211
  Transmission Date: 20140127
  Serious: No
  Sender: FDA-Public Use
  Company Number: US-BAYER-2013-012840

PATIENT
  Age: 2 Year
  Sex: Male
  Weight: 14 kg

DRUGS (1)
  1. ALEVE CAPLET/TABLET,MIDOL EXTENDED RELIEF CAPLET [Suspect]
     Dosage: 1 DF, ONCE
     Route: 045
     Dates: start: 20130118, end: 20130118

REACTIONS (3)
  - Accidental exposure to product by child [None]
  - Incorrect route of drug administration [None]
  - Rhinorrhoea [Not Recovered/Not Resolved]
